FAERS Safety Report 7374981-0 (Version None)
Quarter: 2011Q1

REPORT INFORMATION
  Report Type: 
  Country: None (occurrence: None)
  Receive Date: 20110325
  Receipt Date: 20110314
  Transmission Date: 20110831
  Serious: Yes (Other)
  Sender: FDA-Public Use
  Company Number: PHHY2011DE02698

PATIENT
  Age: 27 Year
  Sex: Female

DRUGS (2)
  1. TRILEPTAL [Suspect]
     Indication: EPILEPSY
     Dosage: DRUG EXPOSURE VIA PARTNER
     Route: 048
  2. TRILEPTAL [Suspect]
     Dosage: DRUG EXPOSURE VIA PARTNER
     Dates: start: 20100401

REACTIONS (2)
  - DRUG EXPOSURE DURING PREGNANCY [None]
  - ABORTION [None]
